FAERS Safety Report 21555767 (Version 1)
Quarter: 2022Q4

REPORT INFORMATION
  Report Type: Report from Study
  Country: DE (occurrence: DE)
  Receive Date: 20221104
  Receipt Date: 20221104
  Transmission Date: 20230112
  Serious: Yes (Hospitalization, Other)
  Sender: FDA-Public Use
  Company Number: DE-MYLANLABS-2022M1084490

PATIENT
  Sex: Female

DRUGS (20)
  1. METHOTREXATE [Suspect]
     Active Substance: METHOTREXATE
     Indication: Rheumatoid arthritis
     Dosage: 17.5 MILLIGRAM, THERAPY END DATE : ASKU
     Route: 065
     Dates: start: 20141112
  2. METHOTREXATE [Suspect]
     Active Substance: METHOTREXATE
     Dosage: 17.5 MILLIGRAM, THERAPY END DATE : ASKU
     Dates: start: 20150730
  3. METHOTREXATE [Suspect]
     Active Substance: METHOTREXATE
     Dosage: 20 MILLIGRAM, THERAPY END DATE : ASKU
     Dates: start: 20171129
  4. METHOTREXATE [Suspect]
     Active Substance: METHOTREXATE
     Dosage: 20 MILLIGRAM, THERAPY END DATE : ASKU
     Dates: start: 20210203
  5. METHOTREXATE [Suspect]
     Active Substance: METHOTREXATE
     Dosage: 20 MILLIGRAM, THERAPY END DATE : ASKU
     Dates: start: 20181030
  6. METHOTREXATE [Suspect]
     Active Substance: METHOTREXATE
     Dosage: 20 MILLIGRAM, THERAPY END DATE : ASKU
     Dates: start: 20190819
  7. METHOTREXATE [Suspect]
     Active Substance: METHOTREXATE
     Dosage: 20 MILLIGRAM, THERAPY END DATE : ASKU
     Dates: start: 20151124
  8. METHOTREXATE [Suspect]
     Active Substance: METHOTREXATE
     Dosage: 20 MILLIGRAM, THERAPY END DATE : ASKU
     Dates: start: 20200127
  9. METHOTREXATE [Suspect]
     Active Substance: METHOTREXATE
     Dosage: 17.5 MILLIGRAM, THERAPY END DATE : ASKU
     Dates: start: 20140114
  10. METHOTREXATE [Suspect]
     Active Substance: METHOTREXATE
     Dosage: 17.5 MILLIGRAM, THERAPY END DATE : ASKU
     Dates: start: 20130827
  11. METHOTREXATE [Suspect]
     Active Substance: METHOTREXATE
     Dosage: 17.5 MILLIGRAM, THERAPY END DATE : ASKU
     Dates: start: 20200610
  12. METHOTREXATE [Suspect]
     Active Substance: METHOTREXATE
     Dosage: 17.5 MILLIGRAM, THERAPY END DATE : ASKU
     Dates: start: 20130527
  13. METHOTREXATE [Suspect]
     Active Substance: METHOTREXATE
     Dosage: 20 MILLIGRAM, THERAPY END DATE : ASKU
     Dates: start: 20160602
  14. METHOTREXATE [Suspect]
     Active Substance: METHOTREXATE
     Dosage: 15 MILLIGRAM, THERAPY END DATE : NASK
     Dates: start: 20130131
  15. METHOTREXATE [Suspect]
     Active Substance: METHOTREXATE
     Dosage: 20 MILLIGRAM, THERAPY END DATE : ASKU
     Dates: start: 20170628
  16. METHOTREXATE [Suspect]
     Active Substance: METHOTREXATE
     Dosage: 20 MILLIGRAM, THERAPY END DATE : ASKU
     Dates: start: 20211027
  17. METHOTREXATE [Suspect]
     Active Substance: METHOTREXATE
     Dosage: 20 MILLIGRAM, THERAPY END DATE : ASKU
     Dates: start: 20161221
  18. METHOTREXATE [Suspect]
     Active Substance: METHOTREXATE
     Dosage: 17.5 MILLIGRAM, THERAPY END DATE : ASKU
     Dates: start: 20140526
  19. SULFASALAZINE [Suspect]
     Active Substance: SULFASALAZINE
     Indication: Rheumatoid arthritis
     Dosage: 2000 MILLIGRAM, THERAPY END DATE :ASKU
     Dates: start: 20130131
  20. SULFASALAZINE [Suspect]
     Active Substance: SULFASALAZINE
     Dosage: 2000 MILLIGRAM, THERAPY END DATE :ASKU
     Dates: start: 20130527

REACTIONS (4)
  - COVID-19 pneumonia [Recovered/Resolved]
  - Foot fracture [Unknown]
  - Hand fracture [Recovered/Resolved]
  - Influenza like illness [Unknown]

NARRATIVE: CASE EVENT DATE: 20171023
